FAERS Safety Report 9165035 (Version 1)
Quarter: 2013Q1

REPORT INFORMATION
  Report Type: Spontaneous
  Country: US (occurrence: None)
  Receive Date: 20130313
  Receipt Date: 20130313
  Transmission Date: 20140127
  Serious: Yes (Hospitalization)
  Sender: FDA-Public Use
  Company Number: None

PATIENT
  Age: 76 Year
  Sex: Male
  Weight: 110.5 kg

DRUGS (1)
  1. PIPERACILLIN/TAZOBACTAM [Suspect]
     Route: 042
     Dates: start: 20120824, end: 20120824

REACTIONS (2)
  - Anaphylactic reaction [None]
  - Bronchospasm [None]
